FAERS Safety Report 5610311-X (Version None)
Quarter: 2008Q1

REPORT INFORMATION
  Report Type: 
  Country: None (occurrence: None)
  Receive Date: 20080111
  Receipt Date: 20070817
  Transmission Date: 20080703
  Serious: Yes (Other)
  Sender: FDA-Public Use
  Company Number: HQWYE164024JUL03

PATIENT
  Age: 83 Year
  Sex: Female

DRUGS (3)
  1. PREMPRO [Suspect]
     Dosage: UNSPECIFIED DOSE, ORAL
     Route: 048
     Dates: start: 19930101, end: 20010801
  2. PREMARIN [Suspect]
     Dosage: ORAL
     Route: 048
  3. PROVERA [Suspect]

REACTIONS (1)
  - CEREBROVASCULAR ACCIDENT [None]
